FAERS Safety Report 14557770 (Version 7)
Quarter: 2018Q2

REPORT INFORMATION
  Report Type: Report from Study
  Country: US (occurrence: US)
  Receive Date: 20180221
  Receipt Date: 20180607
  Transmission Date: 20180711
  Serious: Yes (Hospitalization, Other)
  Sender: FDA-Public Use
  Company Number: US-RETROPHIN, INC.-2018RTN00004

PATIENT
  Age: 4 Month
  Sex: Male
  Weight: 11 kg

DRUGS (14)
  1. CALMOSEPTINE [Concomitant]
     Active Substance: MENTHOL\ZINC OXIDE
  2. DIASTAT ACCUDIAL [Concomitant]
     Dosage: 5 MG, AS NEEDED FOR SEIZURES LONGER THAN 5 MINUTES OR 10 OR MORE SEIZURES IN ONE HOUR
  3. CHOLIC ACID [Suspect]
     Active Substance: CHOLIC ACID
     Indication: LEUKODYSTROPHY
     Dosage: 50 MG, 2X/DAY
     Dates: start: 20160608, end: 20180518
  4. CULTURELLE [Concomitant]
     Active Substance: LACTOBACILLUS RHAMNOSUS
     Route: 048
  5. CHOLECALCIFEROL [Concomitant]
     Active Substance: CHOLECALCIFEROL
     Dosage: 1 ML, 1X/DAY
     Route: 048
  6. FLUTICASONE. [Concomitant]
     Active Substance: FLUTICASONE
     Dosage: 1 DOSAGE UNITS, 1X/DAY INTO EACH NOSTRIL THEREAFTER
     Route: 045
  7. CHOLIC ACID [Suspect]
     Active Substance: CHOLIC ACID
     Indication: LIVER DISORDER
  8. CLORAZEPATE [Concomitant]
     Active Substance: CLORAZEPATE DIPOTASSIUM
     Dosage: 3.75 MG, 3X/DAY AS NEEDED
     Route: 048
  9. TOPIRAMATE. [Concomitant]
     Active Substance: TOPIRAMATE
     Dosage: 75 MG, 2X/DAY
  10. OMEPRAZOLE. [Concomitant]
     Active Substance: OMEPRAZOLE
     Dosage: 5 ML, 1X/DAY BEFORE BREAKFAST
     Route: 048
  11. SIMETHICONE (DIMETHICONE) [Concomitant]
     Active Substance: DIMETHICONE
     Dosage: 0.3 ML, EVERY 6 HOURS AS NEEDED FOR BLOATING
     Route: 048
  12. FLUTICASONE. [Concomitant]
     Active Substance: FLUTICASONE
     Dosage: 2 DOSAGE UNITS, 1X/DAY INTO EACH NOSTRIL FOR 1 WEEK
     Route: 045
  13. OXCARBAZEPINE. [Concomitant]
     Active Substance: OXCARBAZEPINE
     Dosage: 3 ML, 2X/DAY
     Route: 048
  14. SODIUM CHLORIDE. [Concomitant]
     Active Substance: SODIUM CHLORIDE
     Dosage: 4 ML, 2X/DAY
     Route: 055

REACTIONS (26)
  - Disease progression [Not Recovered/Not Resolved]
  - Astigmatism [Unknown]
  - Gastrostomy [Recovered/Resolved]
  - Vomiting [Unknown]
  - Haemoglobin decreased [Not Recovered/Not Resolved]
  - Pyrexia [Unknown]
  - Gastritis [Not Recovered/Not Resolved]
  - Varices oesophageal [Not Recovered/Not Resolved]
  - Gastric ulcer [Unknown]
  - International normalised ratio increased [Recovering/Resolving]
  - Respiratory syncytial virus bronchiolitis [Unknown]
  - Cough [Unknown]
  - Hordeolum [Recovering/Resolving]
  - Haematocrit decreased [Not Recovered/Not Resolved]
  - Melaena [Not Recovered/Not Resolved]
  - Strabismus [Unknown]
  - Periorbital cellulitis [Recovering/Resolving]
  - Seizure [Recovered/Resolved]
  - Gastroenterostomy [Not Recovered/Not Resolved]
  - Iron deficiency anaemia [Not Recovered/Not Resolved]
  - Feeding intolerance [Unknown]
  - Abdominal pain [Recovering/Resolving]
  - Gastrointestinal haemorrhage [Not Recovered/Not Resolved]
  - Deafness neurosensory [Not Recovered/Not Resolved]
  - White blood cell count increased [Recovered/Resolved]
  - Dermatitis contact [Not Recovered/Not Resolved]

NARRATIVE: CASE EVENT DATE: 20160728
